FAERS Safety Report 17054837 (Version 1)
Quarter: 2019Q4

REPORT INFORMATION
  Report Type: Spontaneous
  Country: DE (occurrence: DE)
  Receive Date: 20191120
  Receipt Date: 20191120
  Transmission Date: 20200122
  Serious: Yes (Hospitalization)
  Sender: FDA-Public Use
  Company Number: DE-ANIPHARMA-2019-DE-000157

PATIENT
  Age: 68 Year
  Sex: 0

DRUGS (5)
  1. BISOPROLOL [Concomitant]
     Active Substance: BISOPROLOL
     Dosage: .5 DF DAILY
     Route: 065
  2. SPIRONOLACTONE. [Concomitant]
     Active Substance: SPIRONOLACTONE
     Dosage: 1 DF DAILY
     Route: 065
  3. CANDESARTAN. [Suspect]
     Active Substance: CANDESARTAN
     Indication: PRODUCT USED FOR UNKNOWN INDICATION
     Dosage: 4 MG DAILY
     Route: 048
     Dates: start: 2016, end: 201808
  4. ACETYLSALICYLIC ACID [Concomitant]
     Active Substance: ASPIRIN
     Dosage: 100 MG DAILY
     Route: 065
  5. MAGNETRANS FORTE [Concomitant]
     Active Substance: MAGNESIUM OXIDE
     Dosage: 1 DF DAILY
     Route: 065

REACTIONS (5)
  - Ejection fraction decreased [Unknown]
  - Bundle branch block left [Unknown]
  - Dizziness [Unknown]
  - Echocardiogram abnormal [Unknown]
  - Dyspnoea [Unknown]

NARRATIVE: CASE EVENT DATE: 201808
